FAERS Safety Report 9633226 (Version 1)
Quarter: 2013Q4

REPORT INFORMATION
  Report Type: Spontaneous
  Country: US (occurrence: None)
  Receive Date: 20131018
  Receipt Date: 20131018
  Transmission Date: 20140711
  Serious: Yes (Other)
  Sender: FDA-Public Use
  Company Number: None

PATIENT
  Age: 53 Year
  Sex: Female
  Weight: 55.34 kg

DRUGS (1)
  1. PROAIR HFA [Suspect]

REACTIONS (5)
  - Heart rate increased [None]
  - Tremor [None]
  - Nervousness [None]
  - Cold sweat [None]
  - Anxiety [None]
